FAERS Safety Report 8546407-2 (Version None)
Quarter: 2012Q3

REPORT INFORMATION
  Report Type: 
  Country: None (occurrence: None)
  Receive Date: 20120727
  Receipt Date: 20120130
  Transmission Date: 20120928
  Serious: No
  Sender: FDA-Public Use
  Company Number: US-ASTRAZENECA-2012SE00969

PATIENT
  Age: 56 Year
  Sex: Male

DRUGS (6)
  1. SEROQUEL [Suspect]
     Indication: SLEEP DISORDER
     Route: 048
  2. SEROQUEL [Suspect]
     Indication: DEPRESSION
     Route: 048
  3. SEROQUEL [Suspect]
     Dosage: 100 MG , 1-2 TABLETS PER NIGHT / DAILY
     Route: 048
  4. SEROQUEL [Suspect]
     Indication: SERUM SEROTONIN DECREASED
     Route: 048
  5. SEROQUEL [Suspect]
     Dosage: 100 MG , 1-2 TABLETS PER NIGHT / DAILY
     Route: 048
  6. SEROQUEL [Suspect]
     Dosage: 100 MG , 1-2 TABLETS PER NIGHT / DAILY
     Route: 048

REACTIONS (4)
  - INCORRECT DOSE ADMINISTERED [None]
  - INSOMNIA [None]
  - DRUG DOSE OMISSION [None]
  - OFF LABEL USE [None]
